FAERS Safety Report 9251864 (Version 2)
Quarter: 2013Q3

REPORT INFORMATION
  Report Type: Spontaneous
  Country: US (occurrence: US)
  Receive Date: 20130424
  Receipt Date: 20130710
  Transmission Date: 20140515
  Serious: Yes (Hospitalization, Disabling, Other)
  Sender: FDA-Public Use
  Company Number: US-PFIZER INC-2013127816

PATIENT
  Age: 42 Year
  Sex: Female
  Weight: 53.06 kg

DRUGS (8)
  1. NEURONTIN [Suspect]
     Indication: NEURALGIA
     Dosage: 400 MG, 3X/DAY
     Route: 048
  2. NEURONTIN [Suspect]
     Indication: NEUROPATHY PERIPHERAL
     Dosage: 800 MG, 1X/DAY
     Route: 048
  3. FLEXERIL [Concomitant]
     Indication: MUSCLE RELAXANT THERAPY
     Dosage: 30 MG, 1X/DAY
     Route: 048
  4. THIAMINE [Concomitant]
     Indication: SUPPLEMENTATION THERAPY
     Dosage: UNK
  5. INVEGA [Concomitant]
     Indication: BIPOLAR DISORDER
     Dosage: UNK
     Dates: start: 201303
  6. DEPAKOTE [Concomitant]
     Indication: BIPOLAR DISORDER
     Dosage: UNK
  7. VALPROIC ACID [Concomitant]
     Dosage: UNK
     Dates: start: 201303
  8. DIAZEPAM [Concomitant]
     Indication: MUSCLE SPASMS
     Dosage: 05 MG, UNK
     Dates: start: 20121003

REACTIONS (4)
  - Multiple sclerosis [Unknown]
  - Blood potassium decreased [Unknown]
  - Paralysis [Unknown]
  - Abasia [Unknown]
